FAERS Safety Report 5057184-4 (Version None)
Quarter: 2006Q3

REPORT INFORMATION
  Report Type: 
  Country: None (occurrence: None)
  Receive Date: 20060721
  Receipt Date: 20050601
  Transmission Date: 20061208
  Serious: No
  Sender: FDA-Public Use
  Company Number: US-GLAXOSMITHKLINE-A0560780A

PATIENT
  Sex: Male

DRUGS (7)
  1. AVANDIA [Suspect]
     Dosage: 8MG PER DAY
     Route: 048
  2. INSULIN [Concomitant]
  3. GLUCOTROL [Concomitant]
  4. GLUCOTROL [Concomitant]
  5. UNSPECIFIED MEDICATION [Concomitant]
     Indication: GOUT
  6. BLOOD PRESSURE MEDICATION [Concomitant]
  7. DIURETIC [Concomitant]

REACTIONS (1)
  - FLUID RETENTION [None]
